FAERS Safety Report 4776852-2 (Version None)
Quarter: 2005Q3

REPORT INFORMATION
  Report Type: 
  Country: None (occurrence: None)
  Receive Date: 20050914
  Receipt Date: 20040909
  Transmission Date: 20060218
  Serious: Yes (Hospitalization)
  Sender: FDA-Public Use
  Company Number: 163-20785-04090200

PATIENT
  Age: 65 Year
  Sex: Male
  Weight: 87.09 kg

DRUGS (10)
  1. THALOMID [Suspect]
     Indication: MULTIPLE MYELOMA
     Dosage: 50 MG, QHS, ORAL
     Route: 048
     Dates: start: 20030513
  2. VELCADE [Suspect]
     Indication: MULTIPLE MYELOMA
     Dosage: 1.3MG/M^2, ON DAYS 1, 4, 8, 11 EVERY 28DAYS, INTRAVENOUS
     Route: 042
     Dates: start: 20030422
  3. TYLENOL [Concomitant]
  4. DARVOCET [Concomitant]
  5. ACYCLOVIR [Concomitant]
  6. ZOSTRIX (CAPSAICIN) [Concomitant]
  7. FLONASE [Concomitant]
  8. MVI (MVI 3) [Concomitant]
  9. GLYBURIDE [Concomitant]
  10. LOVENOX [Concomitant]

REACTIONS (5)
  - BACK PAIN [None]
  - CHEST WALL PAIN [None]
  - PAIN [None]
  - SPINAL OSTEOARTHRITIS [None]
  - SYNCOPE [None]
